FAERS Safety Report 14337862 (Version 1)
Quarter: 2017Q4

REPORT INFORMATION
  Report Type: Report from Study
  Country: JP (occurrence: JP)
  Receive Date: 20171229
  Receipt Date: 20171229
  Transmission Date: 20180321
  Serious: Yes (Other)
  Sender: FDA-Public Use
  Company Number: JP-TEVA-2017-JP-838280

PATIENT
  Sex: Female

DRUGS (2)
  1. CARBOPLATIN. [Suspect]
     Active Substance: CARBOPLATIN
     Indication: OVARIAN CANCER
     Dosage: AREA UNDER THE CURVE-BASED DOSING: 6 MG/ML PER MINUTE ON DAY 1, EVERY 3 WEEKS
     Route: 065
  2. PACLITAXEL. [Suspect]
     Active Substance: PACLITAXEL
     Indication: OVARIAN CANCER
     Dosage: AREA UNDER THE CURVE-BASED DOSING: 80MG/M2 ON DAYS 1, 8, AND 15, EVERY 3 WEEKS
     Route: 065

REACTIONS (1)
  - Febrile neutropenia [Unknown]
